FAERS Safety Report 8791660 (Version 2)
Quarter: 2015Q4

REPORT INFORMATION
  Report Type: Spontaneous
  Country: US (occurrence: US)
  Receive Date: 20120918
  Receipt Date: 20151209
  Transmission Date: 20160305
  Serious: Yes (Other)
  Sender: FDA-Public Use
  Company Number: US-JNJFOC-20120904092

PATIENT
  Age: 33 Year
  Sex: Male

DRUGS (2)
  1. LEVAQUIN [Suspect]
     Active Substance: LEVOFLOXACIN
     Indication: PNEUMONIA
     Route: 065
  2. LEVAQUIN [Suspect]
     Active Substance: LEVOFLOXACIN
     Indication: PNEUMONIA
     Route: 065

REACTIONS (15)
  - Arthralgia [Unknown]
  - Tinnitus [Unknown]
  - Tremor [Unknown]
  - Abasia [Unknown]
  - Dry mouth [Unknown]
  - Muscle spasms [Unknown]
  - Urinary hesitation [Unknown]
  - Visual impairment [Unknown]
  - Dry skin [Unknown]
  - Dry eye [Unknown]
  - Asthenia [Unknown]
  - Eye irritation [Unknown]
  - Paraesthesia [Unknown]
  - Palpitations [Unknown]
  - Burning sensation [Unknown]
